FAERS Safety Report 8563825-7 (Version None)
Quarter: 2012Q3

REPORT INFORMATION
  Report Type: 
  Country: None (occurrence: None)
  Receive Date: 20120803
  Receipt Date: 20120730
  Transmission Date: 20120928
  Serious: Yes (Hospitalization)
  Sender: FDA-Public Use
  Company Number: US-AMGEN-USASP2012047516

PATIENT
  Age: 52 Year
  Sex: Female

DRUGS (2)
  1. ENBREL [Suspect]
     Indication: RHEUMATOID ARTHRITIS
     Dosage: 50 MG, QWK
     Dates: start: 20100401, end: 20120620
  2. TREXALL [Concomitant]
     Dosage: 1 MG, UNK
     Dates: start: 20080101

REACTIONS (6)
  - ANKLE OPERATION [None]
  - RHEUMATOID ARTHRITIS [None]
  - NEUROSTIMULATOR IMPLANTATION [None]
  - ABDOMINAL PAIN UPPER [None]
  - THYROID CANCER [None]
  - RETCHING [None]
